FAERS Safety Report 5153200-X (Version None)
Quarter: 2006Q4

REPORT INFORMATION
  Report Type: 
  Country: None (occurrence: None)
  Receive Date: 20061114
  Receipt Date: 20061030
  Transmission Date: 20070319
  Serious: Yes (Life-Threatening, Hospitalization, Other)
  Sender: FDA-Public Use
  Company Number: GXKR2006GB06791

PATIENT
  Age: 52 Year
  Sex: Female

DRUGS (2)
  1. INDOMETHACIN [Suspect]
     Dosage: ORAL
     Route: 048
     Dates: start: 20040101
  2. CO-CODAMOL (CODEINE PHOSPHATE, PARACETAMOL) [Concomitant]

REACTIONS (3)
  - DUODENAL ULCER PERFORATION [None]
  - GASTROINTESTINAL HAEMORRHAGE [None]
  - SURGERY [None]
